FAERS Safety Report 21833675 (Version 2)
Quarter: 2023Q1

REPORT INFORMATION
  Report Type: Report from Study
  Country: US (occurrence: US)
  Receive Date: 20230107
  Receipt Date: 20230111
  Transmission Date: 20230417
  Serious: Yes (Other)
  Sender: FDA-Public Use
  Company Number: US-002147023-NVSC2023US003122

PATIENT
  Age: 62 Year
  Sex: Female

DRUGS (1)
  1. GLATOPA [Suspect]
     Active Substance: GLATIRAMER ACETATE
     Indication: Product used for unknown indication
     Dosage: 40 MG, QD
     Route: 058
     Dates: start: 20210105

REACTIONS (5)
  - Injection site necrosis [Unknown]
  - Impaired healing [Unknown]
  - Injection site ulcer [Unknown]
  - Injection site atrophy [Unknown]
  - Injection site nodule [Unknown]

NARRATIVE: CASE EVENT DATE: 20220901
